FAERS Safety Report 20000786 (Version 1)
Quarter: 2021Q4

REPORT INFORMATION
  Report Type: Spontaneous
  Country: US (occurrence: US)
  Receive Date: 20211026
  Receipt Date: 20211026
  Transmission Date: 20220303
  Serious: No
  Sender: FDA-Public Use
  Company Number: None

PATIENT
  Age: 38 Year
  Sex: Female
  Weight: 73.35 kg

DRUGS (19)
  1. TASIGNA [Suspect]
     Active Substance: NILOTINIB
     Indication: Myeloid leukaemia
     Route: 048
     Dates: start: 20201124
  2. BUSPIRONE [Concomitant]
     Active Substance: BUSPIRONE HYDROCHLORIDE
  3. CARBIDOPA\LEVODOPA [Concomitant]
     Active Substance: CARBIDOPA\LEVODOPA
  4. CETIRIZINE [Concomitant]
     Active Substance: CETIRIZINE HYDROCHLORIDE
  5. CLINDAMYCIN [Concomitant]
     Active Substance: CLINDAMYCIN
  6. DIPHENHYDRAMINE [Concomitant]
     Active Substance: DIPHENHYDRAMINE
  7. HYDROCORTISONE [Concomitant]
     Active Substance: HYDROCORTISONE
  8. HYDROMORPHONE [Concomitant]
     Active Substance: HYDROMORPHONE
  9. IBUPROFEN [Concomitant]
     Active Substance: IBUPROFEN
  10. MAGNESIUM [Concomitant]
     Active Substance: MAGNESIUM
  11. CANNABIS SATIVA SUBSP. INDICA TOP [Concomitant]
     Active Substance: CANNABIS SATIVA SUBSP. INDICA TOP
  12. MIRALAX [Concomitant]
     Active Substance: POLYETHYLENE GLYCOL 3350
  13. MIRTAZAPINE [Concomitant]
     Active Substance: MIRTAZAPINE
  14. MYRBETRIQ [Concomitant]
     Active Substance: MIRABEGRON
  15. OMEPRAZOLE [Concomitant]
     Active Substance: OMEPRAZOLE
  16. ONDANSETRON [Concomitant]
     Active Substance: ONDANSETRON
  17. OXYBUTYNIN. [Concomitant]
     Active Substance: OXYBUTYNIN CHLORIDE
  18. POTASSIUM CITRATE [Concomitant]
     Active Substance: POTASSIUM CITRATE
  19. XTAMPZA ER [Concomitant]
     Active Substance: OXYCODONE

REACTIONS (1)
  - COVID-19 [None]

NARRATIVE: CASE EVENT DATE: 20211025
